FAERS Safety Report 24710202 (Version 1)
Quarter: 2024Q4

REPORT INFORMATION
  Report Type: Report from Study
  Country: JP (occurrence: JP)
  Receive Date: 20241209
  Receipt Date: 20241209
  Transmission Date: 20250115
  Serious: Yes (Hospitalization)
  Sender: ROCHE
  Company Number: JP-002147023-PHHY2011JP03406

PATIENT
  Age: 62 Year
  Sex: Male
  Weight: 50 kg

DRUGS (5)
  1. LUCENTIS [Suspect]
     Active Substance: RANIBIZUMAB
     Indication: Age-related macular degeneration
     Route: 050
     Dates: start: 20100812
  2. LUCENTIS [Suspect]
     Active Substance: RANIBIZUMAB
     Route: 050
     Dates: start: 20100909, end: 20100909
  3. MOXIFLOXACIN HYDROCHLORIDE [Concomitant]
     Active Substance: MOXIFLOXACIN HYDROCHLORIDE
     Indication: Product used for unknown indication
     Dosage: UNK
     Route: 065
     Dates: start: 201008, end: 201009
  4. GATIFLOXACIN [Concomitant]
     Active Substance: GATIFLOXACIN
     Indication: Product used for unknown indication
     Dosage: UNK
     Route: 050
     Dates: start: 201008
  5. GATIFLOXACIN [Concomitant]
     Active Substance: GATIFLOXACIN
     Dosage: UNK
     Route: 050
     Dates: start: 20100923

REACTIONS (14)
  - Endophthalmitis [Recovered/Resolved]
  - Vision blurred [Recovered/Resolved]
  - Visual acuity reduced [Recovering/Resolving]
  - Anterior chamber cell [Recovering/Resolving]
  - Vitreous opacities [Recovered/Resolved]
  - Staphylococcus test positive [Unknown]
  - Anterior chamber flare [Unknown]
  - Iritis [Unknown]
  - Uveitis [Unknown]
  - Vitritis [Unknown]
  - Iridocyclitis [Unknown]
  - Retinal vasculitis [Unknown]
  - Hypopyon [Unknown]
  - Retinal haemorrhage [Recovered/Resolved]

NARRATIVE: CASE EVENT DATE: 20100922
